FAERS Safety Report 7362956-7 (Version None)
Quarter: 2011Q1

REPORT INFORMATION
  Report Type: 
  Country: None (occurrence: None)
  Receive Date: 20110321
  Receipt Date: 20110316
  Transmission Date: 20110831
  Serious: Yes (Other)
  Sender: FDA-Public Use
  Company Number: US-SP-2011-01284

PATIENT
  Sex: Female

DRUGS (1)
  1. THERACYS [Suspect]
     Indication: BLADDER CANCER
     Route: 043

REACTIONS (4)
  - HAEMATURIA [None]
  - DYSURIA [None]
  - BLADDER CANCER RECURRENT [None]
  - BLADDER PAIN [None]
